FAERS Safety Report 5721212-0 (Version None)
Quarter: 2008Q2

REPORT INFORMATION
  Report Type: 
  Country: None (occurrence: None)
  Receive Date: 20080428
  Receipt Date: 20080428
  Transmission Date: 20081010
  Serious: Yes (Other)
  Sender: FDA-Public Use
  Company Number: None

PATIENT
  Age: 56 Year
  Sex: Female
  Weight: 90.7194 kg

DRUGS (1)
  1. LEVAQUIN [Suspect]
     Indication: SINUSITIS
     Dosage: 1 TABLET 1X /DAY FOR 10 DAY PO
     Route: 048
     Dates: start: 20080103, end: 20080114

REACTIONS (4)
  - ARTHRALGIA [None]
  - EXERCISE TOLERANCE DECREASED [None]
  - JOINT SWELLING [None]
  - TENDON RUPTURE [None]
